FAERS Safety Report 15452707 (Version 1)
Quarter: 2018Q4

REPORT INFORMATION
  Report Type: Report from Study
  Country: US (occurrence: US)
  Receive Date: 20181001
  Receipt Date: 20181001
  Transmission Date: 20190204
  Serious: Yes (Other)
  Sender: FDA-Public Use
  Company Number: US-JNJFOC-20180706918

PATIENT
  Age: 89 Year
  Sex: Female

DRUGS (22)
  1. MULTIVITAMINS [Concomitant]
     Active Substance: VITAMINS
  2. ALLOPURINOL. [Concomitant]
     Active Substance: ALLOPURINOL
  3. TESSALON [Concomitant]
     Active Substance: BENZONATATE
  4. ZOVIRAX [Concomitant]
     Active Substance: ACYCLOVIR
  5. COREG [Concomitant]
     Active Substance: CARVEDILOL
  6. LIPITOR [Concomitant]
     Active Substance: ATORVASTATIN CALCIUM
  7. COZAAR [Concomitant]
     Active Substance: LOSARTAN POTASSIUM
  8. IMBRUVICA [Suspect]
     Active Substance: IBRUTINIB
     Indication: CHRONIC LYMPHOCYTIC LEUKAEMIA
     Route: 048
     Dates: start: 20180522
  9. IMBRUVICA [Suspect]
     Active Substance: IBRUTINIB
     Indication: CHRONIC LYMPHOCYTIC LEUKAEMIA
     Route: 048
     Dates: start: 20180523, end: 2018
  10. CALCIUM [Concomitant]
     Active Substance: CALCIUM
  11. BIOTIN [Concomitant]
     Active Substance: BIOTIN
  12. SINGULAIR [Concomitant]
     Active Substance: MONTELUKAST SODIUM
  13. SYMBICORT [Concomitant]
     Active Substance: BUDESONIDE\FORMOTEROL FUMARATE DIHYDRATE
  14. CHROMAGEN OB [Concomitant]
  15. EFFEXOR [Concomitant]
     Active Substance: VENLAFAXINE HYDROCHLORIDE
  16. CHONDROITIN SULFATE W/GLUCOSAMINE [Concomitant]
  17. IMODIUM [Concomitant]
     Active Substance: LOPERAMIDE HYDROCHLORIDE
  18. SYNTHROID [Concomitant]
     Active Substance: LEVOTHYROXINE SODIUM
  19. FISH OIL W/TOCOPHEROL [Concomitant]
  20. VITAMIN B COMPLEX [Concomitant]
     Active Substance: CYANOCOBALAMIN\DEXPANTHENOL\NIACINAMIDE\PYRIDOXINE HYDROCHLORIDE\RIBOFLAVIN 5^-PHOSPHATE SODIUM\THIAMINE HYDROCHLORIDE\VITAMIN B COMPLEX
  21. JANUVIA [Concomitant]
     Active Substance: SITAGLIPTIN PHOSPHATE
  22. VITAMIN D [Concomitant]
     Active Substance: CHOLECALCIFEROL

REACTIONS (6)
  - Blood pressure increased [Unknown]
  - Contusion [Not Recovered/Not Resolved]
  - Rash erythematous [Not Recovered/Not Resolved]
  - Epistaxis [Unknown]
  - Diarrhoea [Unknown]
  - Mouth haemorrhage [Unknown]

NARRATIVE: CASE EVENT DATE: 20180522
